FAERS Safety Report 19838415 (Version 2)
Quarter: 2021Q4

REPORT INFORMATION
  Report Type: Report from Study
  Country: GB (occurrence: GB)
  Receive Date: 20210916
  Receipt Date: 20211130
  Transmission Date: 20220304
  Serious: Yes (Hospitalization)
  Sender: FDA-Public Use
  Company Number: GB-ELI_LILLY_AND_COMPANY-GB202109002110

PATIENT
  Age: 57 Year
  Sex: Male

DRUGS (3)
  1. OLUMIANT [Suspect]
     Active Substance: BARICITINIB
     Indication: Rheumatoid arthritis
     Dosage: 4 MG, DAILY
     Route: 048
     Dates: start: 2021, end: 202108
  2. METHOTREXATE [Concomitant]
     Active Substance: METHOTREXATE
     Indication: Product used for unknown indication
     Dosage: UNK
  3. AMOXICILLIN [Concomitant]
     Active Substance: AMOXICILLIN
     Indication: Product used for unknown indication

REACTIONS (9)
  - White blood cell count decreased [Unknown]
  - Localised infection [Unknown]
  - Stomatitis [Unknown]
  - Dermatitis [Unknown]
  - Skin irritation [Unknown]
  - Mass [Unknown]
  - Scrotal abscess [Unknown]
  - Erythema [Unknown]
  - Furuncle [Unknown]

NARRATIVE: CASE EVENT DATE: 20210801
